FAERS Safety Report 5983972-3 (Version None)
Quarter: 2008Q4

REPORT INFORMATION
  Report Type: 
  Country: None (occurrence: None)
  Receive Date: 20081208
  Receipt Date: 20081126
  Transmission Date: 20090506
  Serious: Yes (Other)
  Sender: FDA-Public Use
  Company Number: JP-ROCHE-566142

PATIENT
  Sex: Male
  Weight: 70 kg

DRUGS (7)
  1. PEGASYS [Suspect]
     Route: 058
     Dates: start: 20071112, end: 20080414
  2. PEGASYS [Suspect]
     Route: 058
     Dates: start: 20080421, end: 20080421
  3. PEGASYS [Suspect]
     Route: 058
     Dates: start: 20080609, end: 20080623
  4. COPEGUS [Suspect]
     Route: 048
     Dates: start: 20071112, end: 20071202
  5. COPEGUS [Suspect]
     Dosage: DIVIDED INTO TWO DOSES; DOSE DECREASED
     Route: 048
     Dates: start: 20071203, end: 20080420
  6. COPEGUS [Suspect]
     Route: 048
     Dates: start: 20080421, end: 20080501
  7. URSO 250 [Concomitant]
     Route: 048
     Dates: start: 20070621, end: 20080522

REACTIONS (1)
  - RHABDOMYOLYSIS [None]
